FAERS Safety Report 10481888 (Version 3)
Quarter: 2014Q4

REPORT INFORMATION
  Report Type: Report from Study
  Country: BR (occurrence: BR)
  Receive Date: 20140929
  Receipt Date: 20141027
  Transmission Date: 20150528
  Serious: Yes (Hospitalization, Other)
  Sender: FDA-Public Use
  Company Number: PHHY2014BR126018

PATIENT
  Sex: Female
  Weight: 24 kg

DRUGS (5)
  1. DIPIRONE [Concomitant]
     Active Substance: METAMIZOLE SODIUM
     Indication: PYREXIA
  2. EXJADE [Suspect]
     Active Substance: DEFERASIROX
     Indication: SERUM FERRITIN INCREASED
     Dosage: 1 DF, AT NIGHT
     Route: 065
  3. IVERMECTINA [Concomitant]
     Indication: LICE INFESTATION
     Dosage: 1 DF, EVERY 2 MONTHS
     Route: 065
  4. HYDREA [Concomitant]
     Active Substance: HYDROXYUREA
     Indication: HAEMATOCRIT DECREASED
     Dosage: 1 DF, DAILY
     Route: 065
  5. DIPIRONE [Concomitant]
     Active Substance: METAMIZOLE SODIUM
     Indication: PAIN
     Dosage: 20 DRP, Q6H
     Route: 065

REACTIONS (4)
  - Umbilical hernia [Not Recovered/Not Resolved]
  - Serum ferritin increased [Unknown]
  - Anaemia [Not Recovered/Not Resolved]
  - Splenomegaly [Not Recovered/Not Resolved]
